FAERS Safety Report 5568421-1 (Version None)
Quarter: 2007Q4

REPORT INFORMATION
  Report Type: 
  Country: None (occurrence: None)
  Receive Date: 20071220
  Receipt Date: 20071214
  Transmission Date: 20080405
  Serious: Yes (Hospitalization)
  Sender: FDA-Public Use
  Company Number: JP-AVENTIS-200720810GDDC

PATIENT
  Age: 42 Year
  Sex: Male

DRUGS (11)
  1. MINIRIN [Suspect]
     Indication: DIABETES INSIPIDUS
     Route: 045
     Dates: start: 19970101, end: 20071021
  2. MINIRIN [Suspect]
     Route: 055
     Dates: start: 20071021
  3. MINIRIN [Suspect]
     Route: 055
     Dates: start: 20071001
  4. MEQUITAZINE [Concomitant]
     Route: 048
     Dates: start: 20071016, end: 20071020
  5. AMBROXOL [Concomitant]
     Route: 048
  6. CLENBUTEROL HYDROCHLORIDE [Concomitant]
     Route: 048
     Dates: start: 20071016, end: 20071020
  7. SERRAPEPTASE [Concomitant]
     Route: 048
     Dates: start: 20071012, end: 20071016
  8. DEXTROMETHORPHANE [Concomitant]
     Route: 048
     Dates: start: 20071012, end: 20071020
  9. CLARITHROMYCIN [Concomitant]
     Route: 048
     Dates: start: 20071012, end: 20071016
  10. CODEINE [Concomitant]
     Route: 048
     Dates: start: 20071012
  11. LEVOFLOXACIN [Concomitant]
     Route: 048
     Dates: start: 20071016, end: 20071020

REACTIONS (2)
  - ABDOMINAL DISTENSION [None]
  - HYPONATRAEMIA [None]
